FAERS Safety Report 24915841 (Version 1)
Quarter: 2025Q1

REPORT INFORMATION
  Report Type: Spontaneous
  Country: US (occurrence: None)
  Receive Date: 20250203
  Receipt Date: 20250203
  Transmission Date: 20250408
  Serious: No
  Sender: MARNEL PHARMACEUTICALS LLC
  Company Number: US-Marnel Pharmaceuticals LLC-MAR202405-000027

PATIENT
  Sex: Male

DRUGS (1)
  1. CROTAN [Suspect]
     Active Substance: CROTAMITON
     Indication: Product used for unknown indication
     Dates: start: 20240403

REACTIONS (1)
  - Rash vesicular [Unknown]

NARRATIVE: CASE EVENT DATE: 20240403
